FAERS Safety Report 7250462-X (Version None)
Quarter: 2011Q1

REPORT INFORMATION
  Report Type: 
  Country: None (occurrence: None)
  Receive Date: 20110121
  Receipt Date: 20110121
  Transmission Date: 20110831
  Serious: Yes (Hospitalization)
  Sender: FDA-Public Use
  Company Number: None

PATIENT
  Age: 48 Year
  Sex: Male
  Weight: 91 kg

DRUGS (12)
  1. ATRIPLA [Suspect]
     Indication: HIV INFECTION
     Dosage: 1 TABLET DAILY PO
     Route: 048
     Dates: start: 20090101, end: 20110120
  2. TIGAN [Concomitant]
  3. KLONOPIN [Concomitant]
  4. OMEPRAZOLE [Concomitant]
  5. METHADONE [Concomitant]
  6. ATRIPLA [Concomitant]
  7. PROMETHAZINE [Concomitant]
  8. PRAVASTATIN [Concomitant]
  9. AMBIEN [Concomitant]
  10. CLONIDINE [Concomitant]
  11. EFFEXOR XR [Concomitant]
  12. MULTI-VITAMIN [Concomitant]

REACTIONS (5)
  - RENAL TUBULAR ACIDOSIS [None]
  - HYPOPHOSPHATAEMIA [None]
  - RENAL TUBULAR DISORDER [None]
  - HYPOKALAEMIA [None]
  - ASTHENIA [None]
